FAERS Safety Report 7353963-9 (Version None)
Quarter: 2011Q1

REPORT INFORMATION
  Report Type: 
  Country: None (occurrence: None)
  Receive Date: 20110315
  Receipt Date: 20110301
  Transmission Date: 20110831
  Serious: Yes (Other)
  Sender: FDA-Public Use
  Company Number: PHHY2011CA17755

PATIENT
  Sex: Female

DRUGS (2)
  1. ACLASTA [Suspect]
     Dosage: UNK
     Dates: start: 20100301
  2. ACLASTA [Suspect]
     Dosage: 5 MG/ 100 ML
     Dates: start: 20110228

REACTIONS (2)
  - PYREXIA [None]
  - PNEUMONIA [None]
